FAERS Safety Report 6129815-9 (Version None)
Quarter: 2009Q1

REPORT INFORMATION
  Report Type: 
  Country: None (occurrence: None)
  Receive Date: 20090324
  Receipt Date: 20090317
  Transmission Date: 20090719
  Serious: Yes (Life-Threatening, Hospitalization, Disabling, Other)
  Sender: FDA-Public Use
  Company Number: NO-ABBOTT-08P-122-0433659-00

PATIENT
  Sex: Female

DRUGS (5)
  1. REDUCTIL 15MG [Suspect]
     Indication: OBESITY
     Route: 048
     Dates: start: 20040825, end: 20070703
  2. REDUCTIL 15MG [Suspect]
     Indication: OVERWEIGHT
     Route: 048
     Dates: end: 20080107
  3. DEPO-PROVERA [Concomitant]
     Indication: CONTRACEPTION
     Dosage: DOSE NOT CHANGED
     Route: 058
     Dates: start: 19990208
  4. SPERSALLERG [Concomitant]
     Indication: HYPERSENSITIVITY
     Dosage: 1 DROPLET 3-5 DAILY
  5. VIVAL [Concomitant]
     Indication: DRUG USE FOR UNKNOWN INDICATION
     Route: 048
     Dates: start: 20080408

REACTIONS (8)
  - CONGESTIVE CARDIOMYOPATHY [None]
  - DYSPNOEA [None]
  - FATIGUE [None]
  - INTRACARDIAC THROMBUS [None]
  - LEFT VENTRICULAR FAILURE [None]
  - PULMONARY THROMBOSIS [None]
  - TACHYCARDIA [None]
  - VENTRICULAR TACHYCARDIA [None]
